FAERS Safety Report 20576374 (Version 1)
Quarter: 2022Q1

REPORT INFORMATION
  Report Type: Spontaneous
  Country: US (occurrence: US)
  Receive Date: 20220310
  Receipt Date: 20220310
  Transmission Date: 20220423
  Serious: Yes (Death, Hospitalization, Other)
  Sender: FDA-Public Use
  Company Number: US-GLAXOSMITHKLINE-US2022AMR043828

PATIENT
  Age: 66 Year
  Sex: Male
  Weight: 131.5 kg

DRUGS (1)
  1. SOTROVIMAB [Suspect]
     Active Substance: SOTROVIMAB
     Indication: COVID-19
     Dosage: 500 MG, ONCE
     Route: 042
     Dates: start: 20220210, end: 20220210

REACTIONS (7)
  - Cardiac arrest [Fatal]
  - Pulseless electrical activity [Fatal]
  - Hyperhidrosis [Unknown]
  - Oropharyngeal pain [Unknown]
  - Unresponsive to stimuli [Unknown]
  - Bradycardia [Unknown]
  - Apnoeic attack [Unknown]

NARRATIVE: CASE EVENT DATE: 20220210
